FAERS Safety Report 15709436 (Version 2)
Quarter: 2018Q4

REPORT INFORMATION
  Report Type: Spontaneous
  Country: US (occurrence: US)
  Receive Date: 20181211
  Receipt Date: 20181217
  Transmission Date: 20190205
  Serious: Yes (Hospitalization, Other)
  Sender: FDA-Public Use
  Company Number: US-PFIZER INC-2018503801

PATIENT
  Age: 28 Year
  Sex: Male

DRUGS (3)
  1. ACETAMINOPHEN;HYDROCODONE [Concomitant]
     Indication: GROIN PAIN
     Dosage: UNK
  2. GABAPENTIN. [Suspect]
     Active Substance: GABAPENTIN
     Indication: GROIN PAIN
     Dosage: 300 MG, 3X/DAY
  3. GABAPENTIN. [Suspect]
     Active Substance: GABAPENTIN
     Dosage: 1600 MG, DAILY

REACTIONS (4)
  - Depression [Recovered/Resolved]
  - Suicide attempt [Recovered/Resolved]
  - Product use in unapproved indication [Unknown]
  - Aggression [Recovered/Resolved]
